FAERS Safety Report 18699149 (Version 1)
Quarter: 2021Q1

REPORT INFORMATION
  Report Type: Not Available
  Country: None (occurrence: None)
  Receive Date: 20210105
  Receipt Date: 20210105
  Transmission Date: 20210419
  Serious: No
  Sender: FDA-Public Use
  Company Number: ROCHE-2092079

PATIENT
  Weight: 63 kg

DRUGS (13)
  1. OCRELIZUMAB. [Suspect]
     Active Substance: OCRELIZUMAB
     Dates: start: 20171117
  2. PARA?TABS [Concomitant]
     Active Substance: ACETAMINOPHEN
     Dosage: 13/DEC/2011, 29/NOV/2011, 17/APR/2019, 19/SEP/2019, 29/NOV/2011
  3. MIRENA [Concomitant]
     Active Substance: LEVONORGESTREL
     Dates: start: 20171004
  4. FOLVITE [Concomitant]
     Active Substance: FOLIC ACID
     Dates: start: 20180322
  5. METHYLPREDNISOLONE. [Concomitant]
     Active Substance: METHYLPREDNISOLONE
     Dosage: 01/APR/2014, 01/FEB/2016, 01/OCT/2013, 02/SEP/2014, 03/MAR/2015, 04/JUL/2016, 06/AUG/2015, 07/JUN/20
  6. PARACETAMOL [Concomitant]
     Active Substance: ACETAMINOPHEN
     Dosage: 01/APR/2014, 01/FEB/2016, 01/OCT/2013, 02/SEP/2014, 03/MAR/2015, 06/AUG/2015, 07/JUN/2017, 13/NOV/20
  7. OCRELIZUMAB. [Suspect]
     Active Substance: OCRELIZUMAB
     Dosage: SUBSEQUENTLY RECEIVED ON 01/FEB/2016,04/JUL/2016, 14/JUL/2016.?ADMINISTERED TWO INFUSIONS OF 300 MG
     Dates: start: 20160118
  8. OCRELIZUMAB. [Suspect]
     Active Substance: OCRELIZUMAB
     Dates: start: 20170607
  9. OCRELIZUMAB. [Suspect]
     Active Substance: OCRELIZUMAB
     Dates: start: 20161219
  10. PARACETAMOL [Concomitant]
     Active Substance: ACETAMINOPHEN
     Dosage: 14/JUN/2011, 04/JUL/2016
  11. ATARAX [Concomitant]
     Active Substance: HYDROXYZINE HYDROCHLORIDE
     Dosage: 01/APR/2014, 01/FEB/2016, 01/OCT/2013, 02/SEP/2014, 03/MAR/2015, 04/JUL/2016, 06/AUG/2015, 07/JUN/20
  12. ARCOXIA [Concomitant]
     Active Substance: ETORICOXIB
     Dates: start: 20180221
  13. OCRELIZUMAB. [Suspect]
     Active Substance: OCRELIZUMAB
     Dosage: TWO INFUSIONS SEPARATED BY 14 DAYS IN EACH TREATMENT CYCLE OF 24 WEEKS AS PER PROTOCOL?SUBSEQUENT DO
     Dates: start: 20110614, end: 20160117

REACTIONS (1)
  - Pyrexia [None]

NARRATIVE: CASE EVENT DATE: 20180312
